FAERS Safety Report 14787897 (Version 1)
Quarter: 2018Q2

REPORT INFORMATION
  Report Type: Spontaneous
  Country: US (occurrence: US)
  Receive Date: 20180422
  Receipt Date: 20180422
  Transmission Date: 20180711
  Serious: No
  Sender: FDA-Public Use
  Company Number: US-JNJFOC-20180319789

PATIENT
  Sex: Male
  Weight: 81.65 kg

DRUGS (3)
  1. TORSEMIDE. [Concomitant]
     Active Substance: TORSEMIDE
     Indication: OEDEMA
  2. DEXAMETHASONE. [Concomitant]
     Active Substance: DEXAMETHASONE
     Dates: start: 2018
  3. DARZALEX [Suspect]
     Active Substance: DARATUMUMAB
     Indication: PRIMARY AMYLOIDOSIS
     Route: 042
     Dates: start: 20180226

REACTIONS (2)
  - Off label use [Unknown]
  - Therapeutic response unexpected [Unknown]
